FAERS Safety Report 8362653-5 (Version None)
Quarter: 2012Q2

REPORT INFORMATION
  Report Type: 
  Country: None (occurrence: None)
  Receive Date: 20120516
  Receipt Date: 20120515
  Transmission Date: 20120825
  Serious: No
  Sender: FDA-Public Use
  Company Number: US-PFIZER INC-2012118383

PATIENT
  Sex: Female
  Weight: 136 kg

DRUGS (3)
  1. CHANTIX [Suspect]
     Indication: SMOKING CESSATION THERAPY
     Dosage: 0.5 MG, UNK
     Route: 048
     Dates: start: 20120501, end: 20120501
  2. CELEBREX [Concomitant]
     Indication: ARTHRITIS
     Dosage: 200 MG, DAILY
  3. CHANTIX [Suspect]
     Dosage: UNK
     Route: 048
     Dates: start: 20120501

REACTIONS (1)
  - CONSTIPATION [None]
